FAERS Safety Report 18392331 (Version 4)
Quarter: 2021Q2

REPORT INFORMATION
  Report Type: Other
  Country: IT (occurrence: GB)
  Receive Date: 20201016
  Receipt Date: 20210601
  Transmission Date: 20210717
  Serious: Yes (Other)
  Sender: FDA-Public Use
  Company Number: IT-ROCHE-2693167

PATIENT
  Age: 38 Year
  Sex: Male

DRUGS (4)
  1. LOPINAVIR;RITONAVIR [Concomitant]
     Active Substance: LOPINAVIR\RITONAVIR
     Dosage: UNK
     Dates: start: 20200330, end: 20200402
  2. HYDROXYCHLOROQUINE [Concomitant]
     Active Substance: HYDROXYCHLOROQUINE
     Dosage: UNK
     Dates: start: 20200330, end: 20200409
  3. TOCILIZUMAB. [Suspect]
     Active Substance: TOCILIZUMAB
     Indication: COVID-19
     Route: 058
     Dates: start: 2020
  4. VEKLURY [Suspect]
     Active Substance: REMDESIVIR
     Indication: COVID-19
     Dosage: LAST DOSE RECEIVED ON 12/APR/2020
     Route: 042
     Dates: start: 20200402

REACTIONS (4)
  - Pyrexia [Recovering/Resolving]
  - Dyspnoea [Recovering/Resolving]
  - Off label use [Unknown]
  - Pancreatitis [Recovering/Resolving]

NARRATIVE: CASE EVENT DATE: 2020
